FAERS Safety Report 12126839 (Version 1)
Quarter: 2016Q1

REPORT INFORMATION
  Report Type: Spontaneous
  Country: JP (occurrence: JP)
  Receive Date: 20160229
  Receipt Date: 20160229
  Transmission Date: 20160526
  Serious: Yes (Hospitalization)
  Sender: FDA-Public Use
  Company Number: JP-009507513-1602JPN012099

PATIENT
  Sex: Male

DRUGS (4)
  1. MENESIT TABLETS - 100 [Suspect]
     Active Substance: CARBIDOPA\LEVODOPA
     Indication: PARKINSONISM
     Dosage: DAILY DOSE UNKNWON
     Route: 048
  2. NAUZELIN [Concomitant]
     Active Substance: DOMPERIDONE
     Dosage: DAILY DOSE UNKNOWN
  3. TRAMCET [Concomitant]
     Active Substance: ACETAMINOPHEN\TRAMADOL
     Dosage: DAILY DOSE UNKNOWN
     Route: 048
  4. VOLTAREN [Concomitant]
     Active Substance: DICLOFENAC SODIUM
     Dosage: DAILY DOSE UNKNOWN

REACTIONS (1)
  - Abasia [Unknown]

NARRATIVE: CASE EVENT DATE: 20160213
